FAERS Safety Report 6517077-X (Version None)
Quarter: 2009Q4

REPORT INFORMATION
  Report Type: 
  Country: None (occurrence: None)
  Receive Date: 20091223
  Receipt Date: 20091214
  Transmission Date: 20100525
  Serious: Yes (Hospitalization, Other)
  Sender: FDA-Public Use
  Company Number: A0835981A

PATIENT
  Age: 75 Year
  Sex: Female

DRUGS (15)
  1. ACYCLOVIR [Suspect]
     Route: 042
  2. DASATINIB [Suspect]
     Indication: MYELODYSPLASTIC SYNDROME
     Dosage: 100MG PER DAY
     Route: 048
     Dates: start: 20081027, end: 20081130
  3. VITAMIN D [Concomitant]
  4. SYNTHROID [Concomitant]
  5. MAGIC MOUTHWASH [Concomitant]
  6. APAP TAB [Concomitant]
  7. PROPRANOLOL [Concomitant]
  8. TRIAMCINOLONE [Concomitant]
  9. INDERAL [Concomitant]
  10. SOLU-MEDROL [Concomitant]
  11. NYSTATIN [Concomitant]
  12. MICRO-K [Concomitant]
  13. SLOW-MAG [Concomitant]
  14. IMDUR [Concomitant]
  15. LIDOCAINE [Concomitant]

REACTIONS (8)
  - DEHYDRATION [None]
  - HEADACHE [None]
  - HEPATITIS [None]
  - HYPERTENSION [None]
  - PYREXIA [None]
  - RENAL FAILURE [None]
  - STOMATITIS [None]
  - SWOLLEN TONGUE [None]
